FAERS Safety Report 25816378 (Version 1)
Quarter: 2025Q3

REPORT INFORMATION
  Report Type: Report from Study
  Country: US (occurrence: US)
  Receive Date: 20250918
  Receipt Date: 20250918
  Transmission Date: 20251020
  Serious: Yes (Hospitalization)
  Sender: NOVARTIS
  Company Number: US-002147023-NVSC2025US145457

PATIENT
  Sex: Female

DRUGS (1)
  1. KISQALI [Suspect]
     Active Substance: RIBOCICLIB SUCCINATE
     Indication: Product used for unknown indication
     Dosage: 2 DOSAGE FORM (2 TABLETS (400MG) BY MOUTH DAILY. ON DAYS 1-21 OF EACH 28-DAY CYCLE), QD
     Route: 048

REACTIONS (1)
  - Illness [Unknown]
